FAERS Safety Report 26061210 (Version 1)
Quarter: 2025Q4

REPORT INFORMATION
  Report Type: Spontaneous
  Country: EU (occurrence: EU)
  Receive Date: 20251118
  Receipt Date: 20251118
  Transmission Date: 20260117
  Serious: Yes (Other)
  Sender: ACERUS PHARMACEUTICALS CORPORATION
  Company Number: EU-ACERUSPHRM-2025-PT-000002

PATIENT
  Age: 30 Year
  Sex: Male
  Weight: 89 kg

DRUGS (1)
  1. TESTOSTERONE [Suspect]
     Active Substance: TESTOSTERONE
     Indication: Product used for unknown indication
     Route: 030
     Dates: start: 2020, end: 202502

REACTIONS (6)
  - Depressed mood [Unknown]
  - Drug abuse [Unknown]
  - Muscle hypertrophy [Unknown]
  - Gynaecomastia [Unknown]
  - Hypertension [Unknown]
  - Hepatic enzyme increased [Unknown]

NARRATIVE: CASE EVENT DATE: 20200101
